FAERS Safety Report 5464319-8 (Version None)
Quarter: 2007Q3

REPORT INFORMATION
  Report Type: 
  Country: None (occurrence: None)
  Receive Date: 20070921
  Receipt Date: 20070914
  Transmission Date: 20080115
  Serious: Yes (Hospitalization)
  Sender: FDA-Public Use
  Company Number: US-ELI_LILLY_AND_COMPANY-US200709003000

PATIENT
  Age: 73 Year
  Sex: Female

DRUGS (8)
  1. HUMULIN N [Suspect]
  2. ERGOCALCIFEROL (VITAMIN D) [Concomitant]
  3. PLAVIX [Concomitant]
     Dosage: 75 MG, UNK
  4. POTASSIUM CHLORIDE [Concomitant]
  5. LIPITOR [Concomitant]
  6. LOPRESSOR [Concomitant]
     Dosage: 100 MG, UNK
  7. TRICOR [Concomitant]
     Dosage: 145 MG, UNK
  8. LASIX [Concomitant]

REACTIONS (1)
  - VASCULAR GRAFT [None]
